FAERS Safety Report 4614751-7 (Version None)
Quarter: 2005Q1

REPORT INFORMATION
  Report Type: 
  Country: None (occurrence: None)
  Receive Date: 20050322
  Receipt Date: 20050223
  Transmission Date: 20050727
  Serious: Yes (Hospitalization, Other)
  Sender: FDA-Public Use
  Company Number: US-ABBOTT-05P-163-0291743-00

PATIENT
  Sex: Female
  Weight: 61.29 kg

DRUGS (10)
  1. HUMIRA [Suspect]
     Indication: RHEUMATOID ARTHRITIS
     Route: 058
     Dates: start: 20041101, end: 20041201
  2. HUMIRA [Suspect]
     Route: 058
     Dates: start: 20050101, end: 20050314
  3. LEFLUNOMIDE [Concomitant]
     Indication: RHEUMATOID ARTHRITIS
     Dates: end: 20040101
  4. BUCINDOLOL HYDROCHLORIDE [Concomitant]
     Indication: OSTEOARTHRITIS
     Route: 048
     Dates: start: 20041201
  5. ATENOLOL [Concomitant]
     Indication: BLOOD PRESSURE INCREASED
     Route: 048
  6. EMBRAMINE [Concomitant]
     Indication: MIGRAINE
     Route: 048
  7. FLUOXETINE HYDROCHLORIDE [Concomitant]
     Indication: DEPRESSION
     Route: 048
     Dates: start: 20040101
  8. TRAMADOL HCL [Concomitant]
     Indication: PAIN
     Dosage: 50 MG
     Route: 048
     Dates: start: 19950101
  9. CHLORDIAZEPOXID [Concomitant]
     Indication: ABDOMINAL RIGIDITY
     Route: 048
     Dates: start: 20040101
  10. PILOCARPINE HYDROCHLORIDE [Concomitant]
     Indication: SJOGREN'S SYNDROME
     Route: 048
     Dates: start: 20040101

REACTIONS (5)
  - FUNGAL INFECTION [None]
  - SMALL INTESTINAL STENOSIS [None]
  - TOOTH INFECTION [None]
  - VAGINAL MYCOSIS [None]
  - WOUND INFECTION STAPHYLOCOCCAL [None]
